FAERS Safety Report 4269934-5 (Version None)
Quarter: 2004Q1

REPORT INFORMATION
  Report Type: 
  Country: None (occurrence: None)
  Receive Date: 20040104
  Receipt Date: 20040104
  Transmission Date: 20041129
  Serious: Yes (Hospitalization)
  Sender: FDA-Public Use
  Company Number: None

PATIENT
  Sex: Female

DRUGS (13)
  1. FUROSEMIDE [Suspect]
     Indication: HYPERTENSION
     Dosage: 40 MG Q AM
     Dates: start: 20021201
  2. SPIRONOLACTONE [Suspect]
     Indication: HYPERTENSION
     Dosage: 25 MG QD
     Dates: start: 20030501
  3. ATENOLOL [Concomitant]
  4. CLONIDINE [Concomitant]
  5. TEMAZEPAM [Concomitant]
  6. TRAZODONE HCL [Concomitant]
  7. LORAZEPAM [Concomitant]
  8. LEVOTHYROXINE SODIUM [Concomitant]
  9. GLIPIZIDE [Concomitant]
  10. VALSARTAN [Concomitant]
  11. METFORMIN HCL [Concomitant]
  12. SERTRALLINE [Concomitant]
  13. HYDROXYN [Concomitant]

REACTIONS (1)
  - ORTHOSTATIC HYPOTENSION [None]
